FAERS Safety Report 14764810 (Version 1)
Quarter: 2018Q2

REPORT INFORMATION
  Report Type: Spontaneous
  Country: ES (occurrence: ES)
  Receive Date: 20180416
  Receipt Date: 20180416
  Transmission Date: 20180711
  Serious: Yes (Hospitalization)
  Sender: FDA-Public Use
  Company Number: ES-TEVA-2018-ES-882369

PATIENT
  Age: 82 Year
  Sex: Male

DRUGS (9)
  1. LISINOPRIL (2222A) [Interacting]
     Active Substance: LISINOPRIL
     Indication: HYPERTENSION
     Route: 048
     Dates: start: 2016, end: 20171221
  2. DILTIAZEM (3735A) [Concomitant]
     Indication: ATRIAL FIBRILLATION
     Route: 048
  3. ALOPURINOL (318A) [Concomitant]
     Active Substance: ALLOPURINOL
     Indication: HYPERURICAEMIA
     Route: 048
  4. FUROSEMIDA (1615A) [Concomitant]
     Active Substance: FUROSEMIDE
     Indication: CHRONIC KIDNEY DISEASE
     Route: 048
  5. CALCIO + VITAMINA D [Concomitant]
     Indication: CHRONIC KIDNEY DISEASE
     Route: 048
  6. SINTROM [Concomitant]
     Active Substance: ACENOCOUMAROL
     Indication: ATRIAL FIBRILLATION
     Route: 048
     Dates: start: 201711
  7. ACIDO ZOLEDRONICO (1251A) [Suspect]
     Active Substance: ZOLEDRONIC ACID
     Indication: LUMBAR VERTEBRAL FRACTURE
     Route: 048
     Dates: start: 20171205, end: 20171205
  8. TRIPTORELINA (2376A) [Concomitant]
     Indication: PROSTATE CANCER
     Route: 058
  9. PARACETAMOL (12A) [Concomitant]
     Active Substance: ACETAMINOPHEN
     Indication: PAIN
     Route: 048

REACTIONS (2)
  - Acute kidney injury [Not Recovered/Not Resolved]
  - Drug interaction [Unknown]

NARRATIVE: CASE EVENT DATE: 20171221
